FAERS Safety Report 19376089 (Version 2)
Quarter: 2022Q1

REPORT INFORMATION
  Report Type: Spontaneous
  Country: US (occurrence: None)
  Receive Date: 20210604
  Receipt Date: 20220301
  Transmission Date: 20220423
  Serious: Yes (Hospitalization, Other)
  Sender: FDA-Public Use
  Company Number: 2021A489625

PATIENT
  Age: 21787 Day
  Sex: Female

DRUGS (59)
  1. NEXIUM [Suspect]
     Active Substance: ESOMEPRAZOLE MAGNESIUM
     Indication: Gastrooesophageal reflux disease
     Route: 048
     Dates: start: 2013, end: 2017
  2. PRILOSEC [Suspect]
     Active Substance: OMEPRAZOLE MAGNESIUM
     Indication: Gastrooesophageal reflux disease
     Route: 048
     Dates: start: 2013, end: 2017
  3. PRILOSEC [Suspect]
     Active Substance: OMEPRAZOLE MAGNESIUM
     Indication: Gastrooesophageal reflux disease
     Dosage: GENERIC
     Route: 048
     Dates: start: 2011, end: 2013
  4. PRILOSEC OTC [Suspect]
     Active Substance: OMEPRAZOLE MAGNESIUM
     Indication: Gastrooesophageal reflux disease
     Route: 048
     Dates: start: 2013, end: 2017
  5. TRAMADOL [Concomitant]
     Active Substance: TRAMADOL
     Indication: Pain
  6. ANCEF [Concomitant]
     Active Substance: CEFAZOLIN SODIUM
     Indication: Antibiotic level
  7. CEFUROXIME [Concomitant]
     Active Substance: CEFUROXIME
     Indication: Antibiotic level
  8. POLYMYXIN B SULFATE\TRIMETHOPRIM [Concomitant]
     Active Substance: POLYMYXIN B SULFATE\TRIMETHOPRIM
     Indication: Eye drop instillation
  9. LOSARTAN [Concomitant]
     Active Substance: LOSARTAN
  10. HYDROCHLOROTHIAZIDE [Concomitant]
     Active Substance: HYDROCHLOROTHIAZIDE
     Indication: Hypertension
  11. TRIAMTERENE [Concomitant]
     Active Substance: TRIAMTERENE
     Indication: Hypertension
  12. DYAZIDE [Concomitant]
     Active Substance: HYDROCHLOROTHIAZIDE\TRIAMTERENE
     Indication: Hypertension
  13. ATORVASTATIN [Concomitant]
     Active Substance: ATORVASTATIN
  14. RANITIDINE [Concomitant]
     Active Substance: RANITIDINE
  15. IBUPROFEN [Concomitant]
     Active Substance: IBUPROFEN
  16. AMLODIPINE [Concomitant]
     Active Substance: AMLODIPINE BESYLATE
  17. ACETAMINOPHEN [Concomitant]
     Active Substance: ACETAMINOPHEN
  18. PROVENTIL [Concomitant]
     Active Substance: ALBUTEROL
  19. ASPIRIN [Concomitant]
     Active Substance: ASPIRIN
  20. CYMBALTA [Concomitant]
     Active Substance: DULOXETINE HYDROCHLORIDE
  21. BISMUTH SUBSALICYLATE [Concomitant]
     Active Substance: BISMUTH SUBSALICYLATE
  22. BENADRYL [Concomitant]
     Active Substance: DIPHENHYDRAMINE HYDROCHLORIDE
  23. OMEGA-3 ACIDS [Concomitant]
     Active Substance: OMEGA-3 FATTY ACIDS
  24. ACETAMINOPHEN\OXYCODONE HYDROCHLORIDE [Concomitant]
     Active Substance: ACETAMINOPHEN\OXYCODONE HYDROCHLORIDE
  25. VITAMIN C [Concomitant]
     Active Substance: ASCORBIC ACID
  26. BETA CAROTENE [Concomitant]
     Active Substance: BETA CAROTENE
  27. CALCIUM CARBONATE [Concomitant]
     Active Substance: CALCIUM CARBONATE
  28. ESTRACE [Concomitant]
     Active Substance: ESTRADIOL
  29. VITAMINS [Concomitant]
     Active Substance: VITAMINS
  30. VITMAIN E [Concomitant]
  31. COMPAZINE [Concomitant]
     Active Substance: PROCHLORPERAZINE MALEATE
  32. REGLAN [Concomitant]
     Active Substance: METOCLOPRAMIDE HYDROCHLORIDE
  33. NAPROXEN [Concomitant]
     Active Substance: NAPROXEN
  34. PENICILLIN [Concomitant]
     Active Substance: PENICILLIN
  35. SPIRONOLACTONE [Concomitant]
     Active Substance: SPIRONOLACTONE
  36. VITAMIN D [Concomitant]
     Active Substance: VITAMIN D NOS
  37. VITAMIN B12 [Concomitant]
     Active Substance: CYANOCOBALAMIN
  38. TECHNETIUM [Concomitant]
  39. KENALOG [Concomitant]
     Active Substance: TRIAMCINOLONE ACETONIDE
  40. GADOBENATE DIMEGLUMINE [Concomitant]
     Active Substance: GADOBENATE DIMEGLUMINE
  41. MEDRONATE SODIUM [Concomitant]
  42. FENTANYL [Concomitant]
     Active Substance: FENTANYL
  43. SODIUM CHLORIDE [Concomitant]
     Active Substance: SODIUM CHLORIDE
  44. POLYTHYLENE GLYCOL [Concomitant]
  45. MAGNESIUM CITRATE [Concomitant]
     Active Substance: MAGNESIUM CITRATE
  46. DEVICE [Concomitant]
     Active Substance: DEVICE
  47. CLINDAMYCIN [Concomitant]
     Active Substance: CLINDAMYCIN
  48. EPHEDRINE/PHOLCODINE/GUAIFENESIN [Concomitant]
  49. PHENYLEPHRINE [Concomitant]
     Active Substance: PHENYLEPHRINE HYDROCHLORIDE
  50. LACTATED RINGERS SOLUTION [Concomitant]
     Active Substance: CALCIUM CHLORIDE\POTASSIUM CHLORIDE\SODIUM CHLORIDE\SODIUM LACTATE
  51. PROPOFOL [Concomitant]
     Active Substance: PROPOFOL
  52. ANECTINE [Concomitant]
     Active Substance: SUCCINYLCHOLINE CHLORIDE
  53. PROSTIGMIN [Concomitant]
     Active Substance: NEOSTIGMINE BROMIDE
  54. MORPHINE [Concomitant]
     Active Substance: MORPHINE
  55. LIDOCAINE [Concomitant]
     Active Substance: LIDOCAINE
  56. DEXAMETHASONE [Concomitant]
     Active Substance: DEXAMETHASONE
  57. BUPIVACAINE [Concomitant]
     Active Substance: BUPIVACAINE
  58. ACETAMINOPHEN\HYDROCODONE BITARTRATE [Concomitant]
     Active Substance: ACETAMINOPHEN\HYDROCODONE BITARTRATE
  59. HEPARIN [Concomitant]
     Active Substance: HEPARIN SODIUM

REACTIONS (3)
  - Chronic kidney disease [Not Recovered/Not Resolved]
  - Acute kidney injury [Not Recovered/Not Resolved]
  - Nephrogenic anaemia [Unknown]

NARRATIVE: CASE EVENT DATE: 20140605
